FAERS Safety Report 23806852 (Version 2)
Quarter: 2025Q1

REPORT INFORMATION
  Report Type: Spontaneous
  Country: US (occurrence: US)
  Receive Date: 20240502
  Receipt Date: 20250225
  Transmission Date: 20250408
  Serious: Yes (Disabling, Other)
  Sender: DR REDDYS
  Company Number: US-E2BLSMVVAL-SPO/USA/24/0006381

PATIENT

DRUGS (6)
  1. QUETIAPINE FUMARATE [Suspect]
     Active Substance: QUETIAPINE FUMARATE
     Indication: Product used for unknown indication
  2. GABAPENTIN [Suspect]
     Active Substance: GABAPENTIN
     Indication: Product used for unknown indication
  3. VYNDAQEL [Suspect]
     Active Substance: TAFAMIDIS MEGLUMINE
     Indication: Product used for unknown indication
     Route: 048
  4. ONDANSETRON [Concomitant]
     Active Substance: ONDANSETRON
     Indication: Product used for unknown indication
  5. IBUPROFEN [Concomitant]
     Active Substance: IBUPROFEN
     Indication: Product used for unknown indication
  6. TYLENOL [Concomitant]
     Active Substance: ACETAMINOPHEN
     Indication: Product used for unknown indication

REACTIONS (10)
  - Immobile [Unknown]
  - Body temperature abnormal [Unknown]
  - Skin disorder [Unknown]
  - Sleep disorder [Unknown]
  - Eye disorder [Unknown]
  - Somnolence [Unknown]
  - Rash papular [Unknown]
  - Dizziness [Unknown]
  - Lethargy [Unknown]
  - Off label use [Unknown]

NARRATIVE: CASE EVENT DATE: 20231201
